FAERS Safety Report 12504814 (Version 2)
Quarter: 2016Q3

REPORT INFORMATION
  Report Type: Spontaneous
  Country: JP (occurrence: JP)
  Receive Date: 20160628
  Receipt Date: 20160728
  Transmission Date: 20161109
  Serious: Yes (Life-Threatening, Other)
  Sender: FDA-Public Use
  Company Number: JP-BAYER-2016-119081

PATIENT
  Age: 72 Year
  Sex: Female

DRUGS (8)
  1. BAYASPIRIN [Interacting]
     Active Substance: ASPIRIN
     Dosage: 100 MG, OM
     Route: 048
     Dates: start: 20160503, end: 20160509
  2. HEPARIN [Suspect]
     Active Substance: HEPARIN SODIUM
     Dosage: UNK
  3. NEXIUM [Concomitant]
     Active Substance: ESOMEPRAZOLE MAGNESIUM
     Dosage: 10 MG, DIALY DOSE
     Route: 048
  4. PRASUGREL [Interacting]
     Active Substance: PRASUGREL
     Indication: ANTIPLATELET THERAPY
     Dosage: 3.75 MG, UNK
     Route: 048
  5. LIPITOR [Concomitant]
     Active Substance: ATORVASTATIN CALCIUM
     Dosage: 10 MG, DAILY DOSE
     Route: 048
  6. COVERSYL [Concomitant]
     Active Substance: PERINDOPRIL
     Dosage: 4 MG, DIALY DOSE
     Route: 048
  7. BAYASPIRIN [Suspect]
     Active Substance: ASPIRIN
     Dosage: 100 MG, OM
     Route: 048
     Dates: start: 20160423, end: 20160425
  8. ARTIST [Concomitant]
     Active Substance: CARVEDILOL
     Dosage: 2.5 MG, BID
     Route: 048

REACTIONS (10)
  - Haemoglobin decreased [None]
  - Peritoneal haematoma [Recovered/Resolved]
  - Drug administration error [None]
  - Labelled drug-drug interaction medication error [None]
  - Artery dissection [Recovered/Resolved]
  - Arterial disorder [Recovered/Resolved]
  - Depressed level of consciousness [None]
  - Arterial stenosis [Recovered/Resolved]
  - Shock haemorrhagic [None]
  - Peritoneal haemorrhage [None]

NARRATIVE: CASE EVENT DATE: 20160425
